FAERS Safety Report 4487703-8 (Version None)
Quarter: 2004Q4

REPORT INFORMATION
  Report Type: 
  Country: None (occurrence: None)
  Receive Date: 20041025
  Receipt Date: 20041011
  Transmission Date: 20050328
  Serious: Yes (Other)
  Sender: FDA-Public Use
  Company Number: US008562

PATIENT
  Age: 45 Year
  Sex: Male

DRUGS (7)
  1. GABITRIL [Suspect]
     Indication: BIPOLAR DISORDER
     Dosage: 12 MG QD ORAL
     Route: 048
     Dates: start: 19981015, end: 19981226
  2. LITHIUM [Concomitant]
  3. DEPAKOTE [Concomitant]
  4. TOPIRMATE [Concomitant]
  5. GABAPENTIN [Concomitant]
  6. OLANZAPINE [Concomitant]
  7. PROLIXIN [Concomitant]

REACTIONS (3)
  - ABDOMINAL DISCOMFORT [None]
  - CONVULSION [None]
  - MANIA [None]
